FAERS Safety Report 7798339-5 (Version None)
Quarter: 2011Q4

REPORT INFORMATION
  Report Type: 
  Country: None (occurrence: None)
  Receive Date: 20111005
  Receipt Date: 20110926
  Transmission Date: 20120403
  Serious: Yes (Other)
  Sender: FDA-Public Use
  Company Number: US-ELI_LILLY_AND_COMPANY-US200906004612

PATIENT
  Sex: Male
  Weight: 129.25 kg

DRUGS (10)
  1. BYETTA [Suspect]
     Dosage: 10 UG, 2/D
     Route: 058
     Dates: start: 20070101, end: 20080101
  2. CRESTOR [Concomitant]
     Dosage: 25 G, DAILY (1/D)
  3. CLONAZEPAM [Concomitant]
     Indication: SEASONAL AFFECTIVE DISORDER
     Dosage: 1 MG, DAILY (1/D)
     Route: 048
  4. BYETTA [Suspect]
     Dosage: 10 UG, 2/D
     Route: 058
     Dates: start: 20081101, end: 20090607
  5. BYETTA [Suspect]
     Indication: TYPE 2 DIABETES MELLITUS
     Dosage: 10 UG, 2/D
     Route: 058
     Dates: start: 20070101, end: 20070701
  6. PHENTERMINE [Concomitant]
     Dates: start: 20080101, end: 20081001
  7. GLUCOVANCE [Concomitant]
     Indication: TYPE 2 DIABETES MELLITUS
     Dosage: 2 D/F, 2/D
  8. JANUVIA [Concomitant]
     Dosage: 100 MG, AS NEEDED
  9. AVANDIA [Concomitant]
     Indication: TYPE 2 DIABETES MELLITUS
  10. ASPIRIN /USA/ [Concomitant]
     Dosage: 2 D/F, DAILY (1/D)
     Route: 048

REACTIONS (15)
  - HYPOGLYCAEMIC UNCONSCIOUSNESS [None]
  - ACCIDENTAL OVERDOSE [None]
  - DRY EYE [None]
  - BLOOD GLUCOSE INCREASED [None]
  - DISORIENTATION [None]
  - FEELING COLD [None]
  - ABDOMINAL DISCOMFORT [None]
  - NAUSEA [None]
  - DRY MOUTH [None]
  - COUGH [None]
  - NERVOUSNESS [None]
  - ASTHENIA [None]
  - VISUAL IMPAIRMENT [None]
  - CATARACT [None]
  - DIZZINESS [None]
